FAERS Safety Report 9780703 (Version 1)
Quarter: 2013Q4

REPORT INFORMATION
  Report Type: Spontaneous
  Country: GB (occurrence: GB)
  Receive Date: 20131224
  Receipt Date: 20131224
  Transmission Date: 20140711
  Serious: Yes (Other)
  Sender: FDA-Public Use
  Company Number: GB-JNJFOC-20131208078

PATIENT
  Sex: 0

DRUGS (3)
  1. INFLIXIMAB, RECOMBINANT [Suspect]
     Indication: RHEUMATOID ARTHRITIS
     Dosage: MAXIMAL DOSE 1000MG??STANDARD REGIME: 0,2,6, 14, 22 WEEKS.
     Route: 042
  2. METHOTREXATE [Suspect]
     Indication: RHEUMATOID ARTHRITIS
     Route: 065
  3. FOLIC ACID [Concomitant]
     Route: 065

REACTIONS (16)
  - Procedural complication [Unknown]
  - Surgery [Unknown]
  - Bone marrow disorder [Unknown]
  - Injury [Unknown]
  - Blood disorder [Unknown]
  - Arrhythmia [Unknown]
  - Hepatobiliary disease [Unknown]
  - Pancreatic disorder [Unknown]
  - Respiratory tract infection [Unknown]
  - Lung infection [Unknown]
  - Musculoskeletal pain [Unknown]
  - Pain [Unknown]
  - Lung disorder [Unknown]
  - Respiratory disorder [Unknown]
  - Cardiac disorder [Unknown]
  - Poisoning [Unknown]
